FAERS Safety Report 23458568 (Version 1)
Quarter: 2024Q1

REPORT INFORMATION
  Report Type: Report from Study
  Country: US (occurrence: US)
  Receive Date: 20240130
  Receipt Date: 20240130
  Transmission Date: 20240410
  Serious: No
  Sender: FDA-Public Use
  Company Number: US-JNJFOC-20240109938

PATIENT
  Age: 58 Year
  Sex: Male

DRUGS (3)
  1. TREMFYA [Suspect]
     Active Substance: GUSELKUMAB
     Indication: Psoriasis
     Route: 065
     Dates: start: 202302
  2. TREMFYA [Suspect]
     Active Substance: GUSELKUMAB
  3. TALTZ [Concomitant]
     Active Substance: IXEKIZUMAB

REACTIONS (6)
  - Device issue [Unknown]
  - Syringe issue [Unknown]
  - Accidental exposure to product [Unknown]
  - Underdose [Unknown]
  - Psoriasis [Unknown]
  - Inappropriate schedule of product administration [Unknown]

NARRATIVE: CASE EVENT DATE: 20240103
